FAERS Safety Report 12582530 (Version 2)
Quarter: 2016Q3

REPORT INFORMATION
  Report Type: Report from Study
  Country: AU (occurrence: AU)
  Receive Date: 20160722
  Receipt Date: 20160725
  Transmission Date: 20161109
  Serious: Yes (Other)
  Sender: FDA-Public Use
  Company Number: PHHY2013AU063881

PATIENT
  Sex: Female

DRUGS (1)
  1. GLIVEC [Suspect]
     Active Substance: IMATINIB MESYLATE
     Indication: CHRONIC MYELOID LEUKAEMIA
     Dosage: UNK
     Route: 048

REACTIONS (6)
  - Neutropenia [Unknown]
  - Anxiety [Unknown]
  - Respiratory tract infection [Not Recovered/Not Resolved]
  - Chest discomfort [Recovering/Resolving]
  - Haemophilus infection [Recovering/Resolving]
  - Swelling face [Unknown]
